FAERS Safety Report 19765513 (Version 3)
Quarter: 2021Q3

REPORT INFORMATION
  Report Type: Spontaneous
  Country: US (occurrence: US)
  Receive Date: 20210830
  Receipt Date: 20210908
  Transmission Date: 20211014
  Serious: Yes (Hospitalization)
  Sender: FDA-Public Use
  Company Number: US-BIOGEN-2021BI01043093

PATIENT
  Age: 22 Year
  Sex: Female

DRUGS (1)
  1. SPINRAZA [Suspect]
     Active Substance: NUSINERSEN
     Indication: SPINAL MUSCULAR ATROPHY
     Dosage: ADMINISTERED VIA A PORT ON PATIENT^S SIDE
     Route: 065
     Dates: start: 20181022

REACTIONS (5)
  - Drug eruption [Unknown]
  - Gastric disorder [Unknown]
  - Meningitis bacterial [Not Recovered/Not Resolved]
  - Off label use [Unknown]
  - Vascular device infection [Not Recovered/Not Resolved]

NARRATIVE: CASE EVENT DATE: 202108
